FAERS Safety Report 6424296-X (Version None)
Quarter: 2009Q4

REPORT INFORMATION
  Report Type: 
  Country: None (occurrence: None)
  Receive Date: 20091103
  Receipt Date: 20091023
  Transmission Date: 20100525
  Serious: Yes (Hospitalization)
  Sender: FDA-Public Use
  Company Number: GB-RANBAXY-2009RR-28806

PATIENT
  Age: 18 Year
  Sex: Female

DRUGS (2)
  1. METRONIDAZOLE [Suspect]
     Indication: URINARY TRACT INFECTION
     Dosage: 400 MG, TID
  2. OFLOXACIN [Suspect]
     Indication: URINARY TRACT INFECTION
     Dosage: 400 MG, BID

REACTIONS (1)
  - PSYCHOTIC DISORDER DUE TO A GENERAL MEDICAL CONDITION [None]
